FAERS Safety Report 21144325 (Version 1)
Quarter: 2022Q3

REPORT INFORMATION
  Report Type: Spontaneous
  Country: US (occurrence: None)
  Receive Date: 20220728
  Receipt Date: 20220728
  Transmission Date: 20221027
  Serious: Yes (Disabling, Other)
  Sender: FDA-Public Use
  Company Number: None

PATIENT
  Age: 64 Year
  Sex: Female
  Weight: 85.5 kg

DRUGS (7)
  1. PRAMIPEXOLE [Suspect]
     Active Substance: PRAMIPEXOLE
     Indication: Restless legs syndrome
     Dosage: OTHER QUANTITY : 1 TABLET(S);?FREQUENCY : TWICE A DAY;?
     Route: 048
     Dates: start: 20011121
  2. LOSARTAN [Concomitant]
     Active Substance: LOSARTAN
  3. Amphetamine salt [Concomitant]
  4. PRAMIPEXOLE [Concomitant]
     Active Substance: PRAMIPEXOLE
  5. GABAPENTIN [Concomitant]
     Active Substance: GABAPENTIN
  6. walker Cane [Concomitant]
  7. Vitron C Iron plus vitamin C elemental iron 65 mg vitamin C 125 mg [Concomitant]

REACTIONS (9)
  - Incontinence [None]
  - Gait disturbance [None]
  - Compulsive shopping [None]
  - Somnolence [None]
  - Nephrolithiasis [None]
  - Renal procedural complication [None]
  - Septic shock [None]
  - Spinal stenosis [None]
  - Posture abnormal [None]

NARRATIVE: CASE EVENT DATE: 20170419
